FAERS Safety Report 6305186-X (Version None)
Quarter: 2009Q3

REPORT INFORMATION
  Report Type: 
  Country: None (occurrence: None)
  Receive Date: 20090811
  Receipt Date: 20090804
  Transmission Date: 20100115
  Serious: Yes (Other)
  Sender: FDA-Public Use
  Company Number: CR-ABBOTT-09P-039-0586767-00

PATIENT
  Sex: Female

DRUGS (1)
  1. EPIVAL [Suspect]
     Indication: EPILEPSY
     Route: 048
     Dates: start: 20051203, end: 20090701

REACTIONS (3)
  - BICYTOPENIA [None]
  - PETECHIAE [None]
  - THROMBOCYTOPENIA [None]
